FAERS Safety Report 7980635-X (Version None)
Quarter: 2011Q4

REPORT INFORMATION
  Report Type: 
  Country: None (occurrence: None)
  Receive Date: 20111214
  Receipt Date: 20111208
  Transmission Date: 20120403
  Serious: Yes (Other)
  Sender: FDA-Public Use
  Company Number: JP-PFIZER INC-2011300157

PATIENT
  Age: 39 Year

DRUGS (1)
  1. ZYVOX [Suspect]
     Dosage: 600 MG, 2X/DAY

REACTIONS (1)
  - ANGIOPATHY [None]
